FAERS Safety Report 16585300 (Version 2)
Quarter: 2019Q3

REPORT INFORMATION
  Report Type: Report from Study
  Country: US (occurrence: US)
  Receive Date: 20190717
  Receipt Date: 20190917
  Transmission Date: 20191004
  Serious: Yes (Hospitalization)
  Sender: FDA-Public Use
  Company Number: US-OTSUKA-2019_026141

PATIENT
  Age: 26 Year
  Sex: Male

DRUGS (1)
  1. ARIPIPRAZOLE. [Suspect]
     Active Substance: ARIPIPRAZOLE
     Indication: BIPOLAR I DISORDER
     Dosage: 400 MG, QM
     Route: 065

REACTIONS (2)
  - Product dose omission [Unknown]
  - Schizoaffective disorder [Recovered/Resolved]

NARRATIVE: CASE EVENT DATE: 201906
